FAERS Safety Report 19719935 (Version 2)
Quarter: 2021Q3

REPORT INFORMATION
  Report Type: Report from Study
  Country: GB (occurrence: GB)
  Receive Date: 20210818
  Receipt Date: 20210907
  Transmission Date: 20211014
  Serious: Yes (Other)
  Sender: FDA-Public Use
  Company Number: GB-MYLANLABS-2021M1045907

PATIENT
  Age: 55 Year
  Sex: Female

DRUGS (37)
  1. DOCETAXEL. [Suspect]
     Active Substance: DOCETAXEL
     Indication: BREAST CANCER
     Dosage: 130 MG, Q3W,CYCLIC (EVERY 3 WEEKS)
     Route: 042
     Dates: start: 20170525, end: 20170525
  2. CHLORHEXIDINE GLUCONATE. [Concomitant]
     Active Substance: CHLORHEXIDINE GLUCONATE
     Dosage: 10 MILLILITER, QID
     Route: 061
     Dates: start: 20170525
  3. FLUCLOXACILLIN [Concomitant]
     Active Substance: FLUCLOXACILLIN
     Indication: PRODUCT USED FOR UNKNOWN INDICATION
     Dosage: UNK
     Route: 048
     Dates: start: 20190122
  4. APIXABAN [Concomitant]
     Active Substance: APIXABAN
     Dosage: 2.5 MILLIGRAM, BID
     Route: 048
     Dates: start: 20190819, end: 20190917
  5. CLOBETASOL PROPIONATE. [Concomitant]
     Active Substance: CLOBETASOL PROPIONATE
     Dosage: 0.05 %, CYCLIC
     Route: 061
     Dates: start: 20170210
  6. CLOBETASOL PROPIONATE. [Concomitant]
     Active Substance: CLOBETASOL PROPIONATE
     Dosage: 0.05 PERCENT, BID
     Route: 061
     Dates: start: 20170210
  7. ERYTHROMYCIN. [Concomitant]
     Active Substance: ERYTHROMYCIN
     Indication: PRODUCT USED FOR UNKNOWN INDICATION
     Dosage: UNK
     Route: 048
     Dates: start: 20190123, end: 20190202
  8. FUSIDIC ACID [Concomitant]
     Active Substance: FUSIDIC ACID
     Indication: PRODUCT USED FOR UNKNOWN INDICATION
     Dosage: UNK
     Dates: start: 201905
  9. TRASTUZUMAB. [Suspect]
     Active Substance: TRASTUZUMAB
     Indication: BREAST CANCER
     Dosage: 400 MG, Q3W,CYCLIC (EVERY 3 WEEKS)
     Route: 042
     Dates: start: 20170614, end: 20180425
  10. PACLITAXEL. [Suspect]
     Active Substance: PACLITAXEL
     Indication: BREAST CANCER
     Dosage: 450 MG, Q3W, CYCLIC (EVERY 3 WEEKS)
     Route: 042
     Dates: start: 20170614, end: 20170614
  11. CETIRIZINE [Concomitant]
     Active Substance: CETIRIZINE HYDROCHLORIDE
     Dosage: 10 MG, 1X/DAY
     Route: 048
     Dates: start: 20190313
  12. SORBINICATE [Concomitant]
     Active Substance: SORBINICATE
     Indication: PRODUCT USED FOR UNKNOWN INDICATION
     Dosage: (1 DF, 4X/DAY) QID
     Route: 060
     Dates: start: 20170526
  13. TRASTUZUMAB. [Suspect]
     Active Substance: TRASTUZUMAB
     Dosage: 378 MG,Q3W, CYCLIC (EVERY 3 WEEKS)
     Route: 042
     Dates: start: 20180516, end: 20190327
  14. PERTUZUMAB. [Suspect]
     Active Substance: PERTUZUMAB
     Indication: BREAST CANCER
     Dosage: 840 MG, Q3W,CYCLIC (EVERY 3 WEEKS (LOADING DOSE))
     Route: 042
     Dates: start: 20170524, end: 20170524
  15. TINZAPARIN [Concomitant]
     Active Substance: TINZAPARIN
     Dosage: UNK, QD
     Route: 058
     Dates: start: 20170713, end: 20190723
  16. PACLITAXEL. [Suspect]
     Active Substance: PACLITAXEL
     Dosage: 375 MG, Q3W,CYCLIC (EVERY 3 WEEKS)
     Route: 042
     Dates: start: 20170705, end: 20170726
  17. PACLITAXEL. [Suspect]
     Active Substance: PACLITAXEL
     Dosage: 450 MG,Q3W, CYCLIC (EVERY 3 WEEKS)
     Route: 042
     Dates: start: 20170816, end: 20170906
  18. TRASTUZUMAB EMTANSINE [Suspect]
     Active Substance: ADO-TRASTUZUMAB EMTANSINE
     Indication: BREAST CANCER
     Dosage: 160 MG,Q3W, CYCLIC (EVERY 3 WEEKS)
     Route: 042
     Dates: start: 20190829
  19. TRASTUZUMAB EMTANSINE [Suspect]
     Active Substance: ADO-TRASTUZUMAB EMTANSINE
     Dosage: 880 MILLIGRAM
     Route: 042
  20. CHLORPHENAMINE [Concomitant]
     Active Substance: CHLORPHENIRAMINE MALEATE
     Indication: PRODUCT USED FOR UNKNOWN INDICATION
     Dosage: 4 MILLIGRAM, QID
     Route: 048
     Dates: start: 20170526
  21. ZOLEDRONIC ACID [Concomitant]
     Active Substance: ZOLEDRONIC ACID
     Dosage: 4 MG
     Route: 042
     Dates: start: 20170525
  22. PERTUZUMAB. [Suspect]
     Active Substance: PERTUZUMAB
     Dosage: 420 MG, Q3W,CYCLIC (EVERY 3 WEEKS)
     Route: 042
     Dates: start: 20170614, end: 20190327
  23. AMITRIPTYLINE HYDROCHLORIDE. [Concomitant]
     Active Substance: AMITRIPTYLINE HYDROCHLORIDE
     Indication: DEPRESSED MOOD
     Dosage: 5 MG, 1X/DAY
     Route: 048
     Dates: start: 20190827
  24. LOPERAMIDE [Concomitant]
     Active Substance: LOPERAMIDE
     Indication: PRODUCT USED FOR UNKNOWN INDICATION
     Dosage: 2 MG
     Route: 048
     Dates: start: 20170613
  25. RANITIDINE. [Concomitant]
     Active Substance: RANITIDINE
     Indication: PRODUCT USED FOR UNKNOWN INDICATION
     Dosage: (150 MG, 2X/DAY) BID
     Route: 048
     Dates: start: 20170525
  26. TRASTUZUMAB EMTANSINE [Suspect]
     Active Substance: ADO-TRASTUZUMAB EMTANSINE
     Dosage: 200 MG,Q3W, CYCLIC (EVERY 3 WEEKS)
     Route: 042
     Dates: start: 20190627, end: 20190718
  27. TRASTUZUMAB EMTANSINE [Suspect]
     Active Substance: ADO-TRASTUZUMAB EMTANSINE
     Dosage: 240 MG,Q3W, CYCLIC (EVERY 3 WEEKS)
     Route: 042
     Dates: start: 20190427, end: 20190606
  28. CALCICHEW D3 FORTE [Concomitant]
     Active Substance: CALCIUM\CHOLECALCIFEROL
     Dosage: UNK UNK, TID (UNK, 3X/DAY)
     Route: 048
     Dates: start: 20170525
  29. DOMPERIDONE [Concomitant]
     Active Substance: DOMPERIDONE
     Indication: PRODUCT USED FOR UNKNOWN INDICATION
     Dosage: 10 MG, CYCLIC
     Route: 048
     Dates: start: 20170523
  30. DOMPERIDONE [Concomitant]
     Active Substance: DOMPERIDONE
     Dosage: 10 MILLIGRAM, TID
     Route: 048
     Dates: start: 20170523
  31. PARACETAMOL [Concomitant]
     Active Substance: ACETAMINOPHEN
     Indication: PRODUCT USED FOR UNKNOWN INDICATION
     Dosage: UNK, PRN
     Route: 048
     Dates: start: 20170525
  32. CARMELLOSE SODIUM [Concomitant]
     Active Substance: CARBOXYMETHYLCELLULOSE SODIUM
     Dosage: (1 DF, 4X/DAY) QID
     Route: 060
     Dates: start: 20170526
  33. SANDO K                            /00031402/ [Concomitant]
     Active Substance: POTASSIUM CHLORIDE
     Indication: PRODUCT USED FOR UNKNOWN INDICATION
     Dosage: 1 DOSAGE FORM, BID
     Route: 048
     Dates: start: 20170525
  34. TRASTUZUMAB. [Suspect]
     Active Substance: TRASTUZUMAB
     Dosage: 525MG,Q3W,CYCLIC (EVERY 3 WEEKS) LOADING DOSE
     Route: 042
     Dates: start: 20170524, end: 20170524
  35. IKERVIS [Concomitant]
     Active Substance: CYCLOSPORINE
     Indication: PRODUCT USED FOR UNKNOWN INDICATION
     Dosage: UNK
     Route: 047
     Dates: start: 201708
  36. TINZAPARIN [Concomitant]
     Active Substance: TINZAPARIN
     Dosage: UNK
     Route: 058
     Dates: start: 20190916
  37. TRANEXAMIC ACID. [Concomitant]
     Active Substance: TRANEXAMIC ACID
     Dosage: UNK
     Dates: start: 20190722

REACTIONS (2)
  - Gastritis [Not Recovered/Not Resolved]
  - Off label use [Not Recovered/Not Resolved]

NARRATIVE: CASE EVENT DATE: 20190727
